FAERS Safety Report 16702174 (Version 2)
Quarter: 2019Q3

REPORT INFORMATION
  Report Type: Spontaneous
  Country: GB (occurrence: GB)
  Receive Date: 20190814
  Receipt Date: 20190827
  Transmission Date: 20191004
  Serious: Yes (Hospitalization, Other)
  Sender: FDA-Public Use
  Company Number: PHHY2019GB154517

PATIENT
  Age: 36 Year
  Sex: Male

DRUGS (3)
  1. GRANULOCYTE COLONY STIMULATING FACTOR [Suspect]
     Active Substance: GRANULOCYTE COLONY-STIMULATING FACTOR NOS
     Indication: ACUTE MYELOID LEUKAEMIA
     Dosage: UNK
     Route: 065
  2. FLUDARABINE [Suspect]
     Active Substance: FLUDARABINE PHOSPHATE
     Indication: ACUTE MYELOID LEUKAEMIA
     Dosage: UNK
     Route: 065
  3. CYTARABINE. [Suspect]
     Active Substance: CYTARABINE
     Indication: ACUTE MYELOID LEUKAEMIA
     Route: 065

REACTIONS (8)
  - Atypical mycobacterial infection [Recovered/Resolved]
  - Leishmaniasis [Recovered/Resolved]
  - Product use in unapproved indication [Unknown]
  - Pyrexia [Recovered/Resolved]
  - Syphilis [Recovered/Resolved]
  - Neutropenic sepsis [Recovered/Resolved]
  - Vasculitis [Recovered/Resolved]
  - Mucormycosis [Recovered/Resolved]
